FAERS Safety Report 7064529-2 (Version None)
Quarter: 2010Q4

REPORT INFORMATION
  Report Type: 
  Country: None (occurrence: None)
  Receive Date: 20101027
  Receipt Date: 20101019
  Transmission Date: 20110411
  Serious: Yes (Other)
  Sender: FDA-Public Use
  Company Number: BR-SANOFI-AVENTIS-2010SA064303

PATIENT
  Age: 63 Year
  Sex: Female
  Weight: 59 kg

DRUGS (6)
  1. LANTUS [Suspect]
     Route: 058
     Dates: start: 20080101
  2. LANTUS [Suspect]
     Route: 058
  3. SOLOSTAR [Suspect]
  4. DIOVAN [Concomitant]
     Route: 048
  5. ALL OTHER THERAPEUTIC PRODUCTS [Concomitant]
     Route: 048
     Dates: start: 20101001
  6. GLIMEPIRIDE/METFORMIN [Concomitant]

REACTIONS (5)
  - BLOOD GLUCOSE FLUCTUATION [None]
  - FALL [None]
  - FEELING ABNORMAL [None]
  - PARAESTHESIA [None]
  - TOOTH FRACTURE [None]
